FAERS Safety Report 13499459 (Version 1)
Quarter: 2017Q2

REPORT INFORMATION
  Report Type: Spontaneous
  Country: US (occurrence: US)
  Receive Date: 20170501
  Receipt Date: 20170501
  Transmission Date: 20170830
  Serious: Yes (Death, Hospitalization)
  Sender: FDA-Public Use
  Company Number: US-B.I. PHARMACEUTICALS,INC./RIDGEFIELD-2017-BI-024114

PATIENT
  Age: 79 Year
  Sex: Male

DRUGS (1)
  1. ZANTAC [Suspect]
     Active Substance: RANITIDINE HYDROCHLORIDE
     Indication: DYSPEPSIA
     Route: 048
     Dates: start: 1997

REACTIONS (8)
  - Clostridium difficile infection [Fatal]
  - Pneumonia [Unknown]
  - Chronic kidney disease [Unknown]
  - Fall [Recovered/Resolved]
  - Urinary tract infection [Unknown]
  - Sepsis [Unknown]
  - Femur fracture [Unknown]
  - Cardiac disorder [Unknown]

NARRATIVE: CASE EVENT DATE: 2014
